FAERS Safety Report 7803190-3 (Version None)
Quarter: 2011Q4

REPORT INFORMATION
  Report Type: 
  Country: None (occurrence: None)
  Receive Date: 20111007
  Receipt Date: 20110927
  Transmission Date: 20120403
  Serious: Yes (Hospitalization, Other)
  Sender: FDA-Public Use
  Company Number: BE-ELI_LILLY_AND_COMPANY-BE201101003378

PATIENT
  Sex: Male

DRUGS (4)
  1. OLANZAPINE [Suspect]
     Dosage: 210 MG, UNKNOWN
     Route: 030
     Dates: start: 20101203
  2. OLANZAPINE [Suspect]
     Dosage: 405 MG, UNKNOWN
     Route: 030
     Dates: start: 20101217
  3. OLANZAPINE [Suspect]
     Indication: SCHIZOPHRENIA
     Dosage: 210 MG, UNKNOWN
     Route: 030
     Dates: start: 20101110
  4. OLANZAPINE [Suspect]
     Dosage: UNK, UNKNOWN
     Route: 030
     Dates: start: 20110107

REACTIONS (8)
  - INSOMNIA [None]
  - DYSKINESIA [None]
  - HEART RATE IRREGULAR [None]
  - SEDATION [None]
  - EXTRAPYRAMIDAL DISORDER [None]
  - CONFUSIONAL STATE [None]
  - DIZZINESS [None]
  - DYSARTHRIA [None]
